FAERS Safety Report 5900467-3 (Version None)
Quarter: 2008Q3

REPORT INFORMATION
  Report Type: 
  Country: None (occurrence: None)
  Receive Date: 20080926
  Receipt Date: 20080915
  Transmission Date: 20090109
  Serious: Yes (Other)
  Sender: FDA-Public Use
  Company Number: US-PFIZER INC-2008060177

PATIENT
  Sex: Female
  Weight: 77.1 kg

DRUGS (14)
  1. CHANTIX [Suspect]
     Indication: SMOKING CESSATION THERAPY
     Dates: start: 20080725
  2. MUSCLE RELAXANTS [Suspect]
     Indication: LOWER LIMB FRACTURE
  3. MUSCLE RELAXANTS [Suspect]
     Indication: PARALYSIS
  4. ANALGESICS [Suspect]
     Indication: LOWER LIMB FRACTURE
  5. ANALGESICS [Suspect]
     Indication: PARALYSIS
  6. ZETIA [Concomitant]
  7. LIPITOR [Concomitant]
  8. WARFARIN SODIUM [Concomitant]
  9. TOPROL-XL [Concomitant]
  10. PROZAC [Concomitant]
  11. LANOXIN [Concomitant]
  12. SOMA [Concomitant]
  13. LORTAB [Concomitant]
  14. VITAMIN TAB [Concomitant]

REACTIONS (9)
  - CIRCUMSTANCE OR INFORMATION CAPABLE OF LEADING TO MEDICATION ERROR [None]
  - DIZZINESS [None]
  - DRUG DOSE OMISSION [None]
  - DYSPNOEA [None]
  - FALL [None]
  - FRUSTRATION [None]
  - HOMICIDAL IDEATION [None]
  - LOWER LIMB FRACTURE [None]
  - MEDICATION ERROR [None]
